FAERS Safety Report 21641671 (Version 2)
Quarter: 2022Q4

REPORT INFORMATION
  Report Type: Spontaneous
  Country: US (occurrence: US)
  Receive Date: 20221125
  Receipt Date: 20221212
  Transmission Date: 20230113
  Serious: No
  Sender: FDA-Public Use
  Company Number: US-Y-MABS THERAPEUTICS, INC.-SPO2022-US-000935

PATIENT
  Age: 6 Year
  Sex: Female
  Weight: 17 kg

DRUGS (6)
  1. DANYELZA [Suspect]
     Active Substance: NAXITAMAB-GQGK
     Indication: Neuroblastoma recurrent
     Dosage: CYCLE 1, DOSE 1
     Route: 042
     Dates: start: 20221014, end: 20221014
  2. DANYELZA [Suspect]
     Active Substance: NAXITAMAB-GQGK
     Dosage: CYCLE 2, DOSE 1
     Route: 042
     Dates: start: 20221114, end: 20221114
  3. DANYELZA [Suspect]
     Active Substance: NAXITAMAB-GQGK
     Dosage: CYCLE 2, DOSE 2
     Route: 042
     Dates: start: 20221116, end: 20221116
  4. DANYELZA [Suspect]
     Active Substance: NAXITAMAB-GQGK
     Dosage: CYCLE 2, DOSE 3
     Route: 042
     Dates: start: 20221118, end: 20221118
  5. GABAPENTIN [Concomitant]
     Active Substance: GABAPENTIN
     Indication: Premedication
  6. OXYCODONE [Concomitant]
     Active Substance: OXYCODONE
     Indication: Premedication
     Dosage: UNK

REACTIONS (5)
  - Pain [Recovered/Resolved]
  - Pain in extremity [Recovered/Resolved]
  - Haemodynamic instability [Recovered/Resolved]
  - Haemodynamic instability [Recovered/Resolved]
  - Haemodynamic instability [Recovered/Resolved]

NARRATIVE: CASE EVENT DATE: 20221114
